FAERS Safety Report 6541460-X (Version None)
Quarter: 2010Q1

REPORT INFORMATION
  Report Type: 
  Country: None (occurrence: None)
  Receive Date: 20100118
  Receipt Date: 20090827
  Transmission Date: 20100710
  Serious: No
  Sender: FDA-Public Use
  Company Number: US-TYCO HEALTHCARE/MALLINCKRODT-T200901597

PATIENT
  Sex: Female

DRUGS (7)
  1. METHADONE POWDER [Suspect]
     Dosage: 10 MG, UNK
     Route: 054
     Dates: start: 20090101
  2. FENTANYL [Suspect]
     Indication: PAIN
     Dosage: 1 PATCH, Q 3 DAYS
     Route: 062
     Dates: start: 20090704, end: 20090721
  3. FENTANYL [Suspect]
     Dosage: 1 PATCH Q 3 DAYS
     Route: 062
     Dates: start: 20090730, end: 20090810
  4. FENTANYL [Suspect]
     Dosage: 1 PATCH, Q 3 DAYS
     Route: 062
     Dates: start: 20090721, end: 20090725
  5. FENTANYL [Suspect]
     Dosage: 1 PATCH Q 3 DAYS
     Route: 062
     Dates: start: 20090810
  6. FENTANYL [Suspect]
     Dosage: 2 PATCHES
     Route: 062
     Dates: start: 20090725, end: 20090730
  7. PHENERGAN HCL [Suspect]
     Route: 030

REACTIONS (3)
  - CONSTIPATION [None]
  - NAUSEA [None]
  - VOMITING [None]
